FAERS Safety Report 12342477 (Version 2)
Quarter: 2016Q2

REPORT INFORMATION
  Report Type: Report from Study
  Country: BR (occurrence: BR)
  Receive Date: 20160506
  Receipt Date: 20160617
  Transmission Date: 20160815
  Serious: Yes (Hospitalization)
  Sender: FDA-Public Use
  Company Number: BR-UCBSA-2015016047

PATIENT
  Age: 73 Year
  Sex: Female
  Weight: 65 kg

DRUGS (8)
  1. OLMESARTAN MEDOXOMIL. [Concomitant]
     Active Substance: OLMESARTAN MEDOXOMIL
     Indication: HYPERTENSION
     Dosage: UNK UNK, ONCE DAILY (QD)
     Route: 048
     Dates: start: 2013
  2. XARELTO [Concomitant]
     Active Substance: RIVAROXABAN
     Dosage: 15 MG, 2X/DAY (BID)
     Dates: start: 20160420
  3. CERTOLIZUMAB PEGOL [Suspect]
     Active Substance: CERTOLIZUMAB PEGOL
     Indication: SPONDYLITIS
  4. CERTOLIZUMAB PEGOL [Suspect]
     Active Substance: CERTOLIZUMAB PEGOL
     Indication: RHEUMATOID ARTHRITIS
     Dosage: 200 MG EV 2 WEEKS(QOW)
     Route: 058
  5. XARELTO [Concomitant]
     Active Substance: RIVAROXABAN
     Indication: ANTICOAGULANT THERAPY
     Dosage: 10 MG, UNK
     Route: 030
     Dates: start: 20160416
  6. HUMIRA [Concomitant]
     Active Substance: ADALIMUMAB
     Indication: RHEUMATOID ARTHRITIS
     Dosage: EV 15 DAYS
     Route: 030
     Dates: start: 2012, end: 2014
  7. REMICADE [Concomitant]
     Active Substance: INFLIXIMAB
     Indication: HYPERTENSION
     Dosage: UNK, ONCE DAILY (QD)
     Route: 048
  8. CERTOLIZUMAB PEGOL [Suspect]
     Active Substance: CERTOLIZUMAB PEGOL
     Indication: OFF LABEL USE

REACTIONS (7)
  - Immunodeficiency [Not Recovered/Not Resolved]
  - Urinary tract infection [Recovered/Resolved]
  - Pulmonary thrombosis [Recovering/Resolving]
  - Limb injury [Recovered/Resolved]
  - Off label use [Unknown]
  - Fall [Recovered/Resolved]
  - Drug dose omission [Unknown]

NARRATIVE: CASE EVENT DATE: 201501
